FAERS Safety Report 4480715-X (Version None)
Quarter: 2004Q4

REPORT INFORMATION
  Report Type: 
  Country: None (occurrence: None)
  Receive Date: 20041019
  Receipt Date: 20041001
  Transmission Date: 20050328
  Serious: Yes (Death)
  Sender: FDA-Public Use
  Company Number: DSA_70427_2004

PATIENT
  Age: 71 Year
  Sex: 0

DRUGS (3)
  1. MORPHINE [Suspect]
     Dosage: DF
  2. OXYCODONE [Suspect]
     Dosage: DF
  3. HEROIN [Suspect]
     Dosage: DF

REACTIONS (1)
  - DEATH [None]
